FAERS Safety Report 10577456 (Version 1)
Quarter: 2014Q4

REPORT INFORMATION
  Report Type: Spontaneous
  Country: AU (occurrence: AU)
  Receive Date: 20141111
  Receipt Date: 20141111
  Transmission Date: 20150529
  Serious: Yes (Other)
  Sender: FDA-Public Use
  Company Number: AU-SYMPLMED PHARMACEUTICALS-2014SYM00162

PATIENT
  Age: 38 Year
  Sex: Female

DRUGS (1)
  1. ACEON [Suspect]
     Active Substance: PERINDOPRIL ERBUMINE
     Indication: PROPHYLAXIS
     Dosage: UNK
     Dates: start: 20081117

REACTIONS (3)
  - Suicidal behaviour [Recovered/Resolved]
  - Intentional overdose [Recovered/Resolved]
  - No adverse event [Recovered/Resolved]

NARRATIVE: CASE EVENT DATE: 20081117
